FAERS Safety Report 4390354-7 (Version None)
Quarter: 2004Q2

REPORT INFORMATION
  Report Type: 
  Country: None (occurrence: None)
  Receive Date: 20040630
  Receipt Date: 20040621
  Transmission Date: 20050107
  Serious: Yes (Death)
  Sender: FDA-Public Use
  Company Number: HQWYE485520JAN04

PATIENT
  Age: 62 Year
  Sex: Female

DRUGS (8)
  1. MYLOTARG [Suspect]
     Dosage: 5.2 MG
     Dates: start: 20031230, end: 20031230
  2. CYTARABINE [Suspect]
     Dosage: 150 MG/STOP DATE NOT PROVIDED
     Dates: start: 20031231
  3. ETOPOSIDE [Suspect]
     Dosage: 170 MG/STOP DATE NOT PROVIDED
     Dates: start: 20031231
  4. IDARUBICIN HCL [Suspect]
     Dosage: 14 MG
     Dates: start: 20031231, end: 20031231
  5. IDARUBICIN HCL [Suspect]
     Dosage: 14 MG
     Dates: start: 20040102, end: 20040102
  6. IDARUBICIN HCL [Suspect]
     Dosage: 14 MG
     Dates: start: 20040104, end: 20040104
  7. CO-TRIMOXAZOLE  (SULFAMOXAZOLE/TRIMETHOPRIM) [Concomitant]
  8. COLISTIN    (COLISTIN) [Concomitant]

REACTIONS (11)
  - ALANINE AMINOTRANSFERASE INCREASED [None]
  - ASPARTATE AMINOTRANSFERASE INCREASED [None]
  - ATRIAL FIBRILLATION [None]
  - BLOOD BILIRUBIN INCREASED [None]
  - CANDIDIASIS [None]
  - FLUID RETENTION [None]
  - HEPATIC FUNCTION ABNORMAL [None]
  - LUNG INFECTION [None]
  - LUNG INFILTRATION [None]
  - RESPIRATORY FAILURE [None]
  - WEIGHT INCREASED [None]
